FAERS Safety Report 9221722 (Version 1)
Quarter: 2013Q2

REPORT INFORMATION
  Report Type: Spontaneous
  Country: US (occurrence: US)
  Receive Date: 20130410
  Receipt Date: 20130410
  Transmission Date: 20140414
  Serious: No
  Sender: FDA-Public Use
  Company Number: US-BAYER-2013-044539

PATIENT
  Age: 76 Year
  Sex: Female

DRUGS (2)
  1. AVELOX [Suspect]
     Indication: ACUTE SINUSITIS
     Dosage: 400 MG, QD
     Route: 048
  2. MEDICATION FOR A THYROID CONDITION [Concomitant]

REACTIONS (1)
  - Off label use [None]
